FAERS Safety Report 13254812 (Version 1)
Quarter: 2017Q1

REPORT INFORMATION
  Report Type: Spontaneous
  Country: US (occurrence: US)
  Receive Date: 20170217
  Receipt Date: 20170217
  Transmission Date: 20170428
  Serious: Yes (Disabling)
  Sender: FDA-Public Use
  Company Number: None

PATIENT
  Age: 49 Year
  Sex: Male
  Weight: 88.65 kg

DRUGS (8)
  1. CRESTOR [Concomitant]
     Active Substance: ROSUVASTATIN CALCIUM
  2. ASPIRIN. [Concomitant]
     Active Substance: ASPIRIN
  3. CIPRO [Suspect]
     Active Substance: CIPROFLOXACIN HYDROCHLORIDE
     Indication: URINARY TRACT INFECTION
     Dosage: ?          QUANTITY:20 TABLET(S);?
     Route: 048
     Dates: start: 20170207, end: 20170216
  4. FISH OIL [Concomitant]
     Active Substance: FISH OIL
  5. ATACAND [Concomitant]
     Active Substance: CANDESARTAN CILEXETIL
  6. COQ10 [Concomitant]
     Active Substance: UBIDECARENONE
  7. ZETIA [Concomitant]
     Active Substance: EZETIMIBE
  8. MULTIVITAMIN [Concomitant]
     Active Substance: VITAMINS

REACTIONS (7)
  - Tendon pain [None]
  - Fear [None]
  - Tendon disorder [None]
  - Nerve injury [None]
  - Neuralgia [None]
  - Myalgia [None]
  - Musculoskeletal pain [None]

NARRATIVE: CASE EVENT DATE: 20170209
